FAERS Safety Report 19437229 (Version 1)
Quarter: 2021Q2

REPORT INFORMATION
  Report Type: Spontaneous
  Country: DE (occurrence: DE)
  Receive Date: 20210618
  Receipt Date: 20210618
  Transmission Date: 20210717
  Serious: Yes (Other)
  Sender: FDA-Public Use
  Company Number: DE-BRISTOL-MYERS SQUIBB COMPANY-BMS-2021-057658

PATIENT
  Age: 16 Year
  Sex: Female

DRUGS (1)
  1. ABATACEPT [Suspect]
     Active Substance: ABATACEPT
     Indication: JUVENILE IDIOPATHIC ARTHRITIS
     Dosage: 57 MILLIGRAM, Q4WK
     Route: 065
     Dates: start: 202009

REACTIONS (3)
  - Optic neuritis [Unknown]
  - Multiple sclerosis [Unknown]
  - Intentional underdose [Unknown]

NARRATIVE: CASE EVENT DATE: 202106
